FAERS Safety Report 13965423 (Version 3)
Quarter: 2017Q4

REPORT INFORMATION
  Report Type: Spontaneous
  Country: US (occurrence: US)
  Receive Date: 20170913
  Receipt Date: 20171026
  Transmission Date: 20180320
  Serious: Yes (Hospitalization)
  Sender: FDA-Public Use
  Company Number: US-ALKERMES INC.-ALK-2017-003660

PATIENT
  Age: 61 Year
  Sex: Female

DRUGS (1)
  1. VIVITROL [Suspect]
     Active Substance: NALTREXONE
     Indication: ALCOHOLISM
     Dosage: 380 MG, QMO
     Route: 030
     Dates: start: 20170721

REACTIONS (4)
  - Fall [Recovering/Resolving]
  - Concussion [Recovering/Resolving]
  - Upper limb fracture [Recovering/Resolving]
  - Fracture pain [Recovering/Resolving]

NARRATIVE: CASE EVENT DATE: 20170902
